FAERS Safety Report 4506481-7 (Version None)
Quarter: 2004Q4

REPORT INFORMATION
  Report Type: 
  Country: None (occurrence: None)
  Receive Date: 20041122
  Receipt Date: 20041111
  Transmission Date: 20050328
  Serious: Yes (Hospitalization)
  Sender: FDA-Public Use
  Company Number: US-ABBOTT-04P-163-0280342-00

PATIENT
  Sex: Female

DRUGS (10)
  1. HYDROMORPHONE [Suspect]
     Indication: PAIN
     Route: 048
     Dates: start: 20041021, end: 20041027
  2. XYOTAX (CT-2103) [Suspect]
     Indication: OVARIAN CANCER
     Route: 042
     Dates: start: 20040618, end: 20041013
  3. CARBOPLATIN [Suspect]
     Indication: OVARIAN CANCER
     Route: 042
     Dates: start: 20040618, end: 20041013
  4. FENTANYL [Suspect]
     Indication: PAIN
     Route: 062
     Dates: start: 20041021, end: 20041027
  5. PROPACET 100 [Suspect]
     Indication: PAIN
     Route: 048
     Dates: start: 20041021, end: 20041027
  6. LEVOTHYROXINE SODIUM [Concomitant]
     Indication: DRUG USE FOR UNKNOWN INDICATION
  7. ENALAPRIL MALEATE [Concomitant]
     Indication: DRUG USE FOR UNKNOWN INDICATION
  8. MAGNESIUM OXIDE [Concomitant]
     Indication: DRUG USE FOR UNKNOWN INDICATION
  9. ONDANSETRON HCL [Concomitant]
     Indication: DRUG USE FOR UNKNOWN INDICATION
  10. LORAZEPAM [Concomitant]
     Indication: DRUG USE FOR UNKNOWN INDICATION

REACTIONS (8)
  - ILEUS [None]
  - METASTASES TO BONE [None]
  - METASTATIC NEOPLASM [None]
  - SPINAL CORD COMPRESSION [None]
  - THROMBOSIS [None]
  - UNEVALUABLE EVENT [None]
  - URINARY BLADDER POLYP [None]
  - UROGENITAL FISTULA [None]
